FAERS Safety Report 8284521-X (Version None)
Quarter: 2012Q2

REPORT INFORMATION
  Report Type: 
  Country: None (occurrence: None)
  Receive Date: 20120413
  Receipt Date: 20110902
  Transmission Date: 20120825
  Serious: No
  Sender: FDA-Public Use
  Company Number: US-ASTRAZENECA-2011SE51525

PATIENT
  Age: 63 Year
  Sex: Male
  Weight: 68.9 kg

DRUGS (7)
  1. NEXIUM [Suspect]
     Route: 048
  2. ASPIRIN [Concomitant]
  3. HYDROCHLOROTHIAZIDE [Concomitant]
  4. LISINOPRIL [Concomitant]
  5. RANITIDINE [Concomitant]
  6. METFORMIN HCL [Concomitant]
  7. NEXIUM [Suspect]
     Indication: GASTRIC DISORDER
     Route: 048

REACTIONS (3)
  - VOMITING [None]
  - OEDEMA PERIPHERAL [None]
  - DRUG DOSE OMISSION [None]
